FAERS Safety Report 7989584-4 (Version None)
Quarter: 2011Q4

REPORT INFORMATION
  Report Type: 
  Country: None (occurrence: None)
  Receive Date: 20111219
  Receipt Date: 20110328
  Transmission Date: 20120403
  Serious: No
  Sender: FDA-Public Use
  Company Number: US-ASTRAZENECA-2010SE01422

PATIENT
  Age: 72 Year
  Sex: Female
  Weight: 52.2 kg

DRUGS (6)
  1. WATER PILL [Concomitant]
     Indication: HYPERTENSION
  2. HYDROCHLOROTHIAZIDE [Concomitant]
     Indication: HYPERTENSION
  3. DIURETIC [Concomitant]
     Indication: BLOOD PRESSURE
  4. CALCIUM AND VIT D [Concomitant]
     Indication: OSTEOPOROSIS PROPHYLAXIS
  5. CRESTOR [Suspect]
     Indication: HYPERCHOLESTEROLAEMIA
     Route: 048
     Dates: start: 20090101
  6. CRESTOR [Suspect]
     Route: 048
     Dates: start: 20090101

REACTIONS (4)
  - FLATULENCE [None]
  - ALOPECIA [None]
  - GASTROOESOPHAGEAL REFLUX DISEASE [None]
  - PARAESTHESIA [None]
